FAERS Safety Report 8594133-6 (Version None)
Quarter: 2012Q3

REPORT INFORMATION
  Report Type: 
  Country: None (occurrence: None)
  Receive Date: 20120814
  Receipt Date: 20120723
  Transmission Date: 20120928
  Serious: Yes (Hospitalization, Other)
  Sender: FDA-Public Use
  Company Number: TW-AMGEN-TWNSP2012047266

PATIENT
  Age: 65 Year
  Sex: Female

DRUGS (6)
  1. ENBREL [Suspect]
     Indication: RHEUMATOID ARTHRITIS
     Dosage: 25 MG, 2X/WEEK
     Route: 058
     Dates: start: 20100803, end: 20120722
  2. ASPIRIN [Concomitant]
     Dosage: 1 DF, 1X/DAY
     Dates: start: 20120222, end: 20120516
  3. HYDROXYCHLOROQUINE SULFATE [Concomitant]
     Dosage: 1 DF, 1X/DAY
     Dates: start: 20100316, end: 20110404
  4. METHOTREXATE [Concomitant]
     Dosage: 3 DF, WEEKLY
     Dates: start: 20090101
  5. ETORICOXIB [Concomitant]
     Dosage: 1.5 DF, 1X/DAY
     Dates: start: 20120530
  6. CELECOXIB [Concomitant]
     Dosage: 1 DF, 1X/DAY
     Dates: start: 20100316, end: 20120530

REACTIONS (1)
  - HEPATIC NEOPLASM MALIGNANT [None]
